FAERS Safety Report 9458287 (Version 1)
Quarter: 2013Q3

REPORT INFORMATION
  Report Type: Spontaneous
  Country: BR (occurrence: BR)
  Receive Date: 20130814
  Receipt Date: 20130814
  Transmission Date: 20140515
  Serious: Yes (Other)
  Sender: FDA-Public Use
  Company Number: BR-PFIZER INC-2013233958

PATIENT
  Age: 83 Year
  Sex: Female
  Weight: 67 kg

DRUGS (2)
  1. CELEBRA [Suspect]
     Dosage: 200 MG, 1X/DAY
     Route: 048
  2. TRAMADOL HCL [Suspect]
     Dosage: UNK, EVERY 12 HOURS

REACTIONS (2)
  - Knee arthroplasty [Unknown]
  - Exostosis [Unknown]
